FAERS Safety Report 7591083-9 (Version None)
Quarter: 2011Q3

REPORT INFORMATION
  Report Type: 
  Country: None (occurrence: None)
  Receive Date: 20110705
  Receipt Date: 20110701
  Transmission Date: 20111222
  Serious: Yes (Death, Other)
  Sender: FDA-Public Use
  Company Number: PHHY2011IT59027

PATIENT
  Sex: Male

DRUGS (7)
  1. OXALIPLATIN [Suspect]
     Indication: COLON CANCER
     Dosage: 120 MG, CYCLIC
     Route: 042
     Dates: start: 20110525, end: 20110608
  2. CALCIUM GLUCONATE [Concomitant]
     Dosage: 100 MG, UNK
     Route: 042
  3. MAGNESIUM SULPHATE PASTE [Concomitant]
     Dosage: 1000 MG, UNK
  4. DEXAMETHASONE [Concomitant]
     Dosage: 8 MG, UNK
  5. GRANISETRON [Concomitant]
     Dosage: 3 MG, UNK
  6. RANITIDINE [Concomitant]
     Dosage: 50 MG, UNK
  7. LEUCOVORIN CALCIUM [Suspect]
     Indication: COLON CANCER
     Dosage: 190 MG, CYCLIC
     Route: 042
     Dates: start: 20110525, end: 20110608

REACTIONS (3)
  - DEATH [None]
  - DISEASE PROGRESSION [None]
  - CARDIAC ARREST [None]
